FAERS Safety Report 14802497 (Version 1)
Quarter: 2018Q2

REPORT INFORMATION
  Report Type: Other
  Country: RS (occurrence: RS)
  Receive Date: 20180424
  Receipt Date: 20180424
  Transmission Date: 20180711
  Serious: Yes (Life-Threatening)
  Sender: FDA-Public Use
  Company Number: RS-GE HEALTHCARE LIFE SCIENCES-2018CSU001543

PATIENT

DRUGS (1)
  1. VISIPAQUE [Suspect]
     Active Substance: IODIXANOL
     Indication: PRODUCT USED FOR UNKNOWN INDICATION
     Dosage: 90 ML, SINGLE
     Route: 042
     Dates: start: 20180322, end: 20180322

REACTIONS (6)
  - Hypotension [Recovered/Resolved]
  - Cyanosis central [Recovered/Resolved]
  - Loss of consciousness [Recovered/Resolved]
  - General physical health deterioration [Recovered/Resolved]
  - Mydriasis [Recovered/Resolved]
  - Pulse absent [Recovered/Resolved]

NARRATIVE: CASE EVENT DATE: 20180322
